FAERS Safety Report 12403394 (Version 1)
Quarter: 2016Q2

REPORT INFORMATION
  Report Type: Spontaneous
  Country: JP (occurrence: JP)
  Receive Date: 20160525
  Receipt Date: 20160525
  Transmission Date: 20160815
  Serious: Yes (Other)
  Sender: FDA-Public Use
  Company Number: JP-FRESENIUS KABI-FK201602925

PATIENT
  Age: 62 Year
  Sex: Female

DRUGS (1)
  1. FLUOROURACIL (MANUFACTURER UNKNOWN) [Suspect]
     Active Substance: FLUOROURACIL
     Indication: HEPATIC NEOPLASM
     Route: 013

REACTIONS (4)
  - Abdominal pain [Unknown]
  - Pyrexia [Unknown]
  - Haematuria [Unknown]
  - Hepatic function abnormal [Unknown]
